FAERS Safety Report 12343833 (Version 3)
Quarter: 2024Q4

REPORT INFORMATION
  Report Type: Report from Study
  Country: FR (occurrence: FR)
  Receive Date: 20160507
  Receipt Date: 20241130
  Transmission Date: 20250115
  Serious: Yes (Other)
  Sender: ACCORD
  Company Number: FR-ACCORD-040121

PATIENT
  Age: 26 Year
  Sex: Female

DRUGS (8)
  1. MYCOPHENOLIC ACID [Suspect]
     Active Substance: MYCOPHENOLIC ACID
     Indication: Renal transplant
     Dosage: MMF WAS GIVEN AT 1 G B.I.D. UNTIL POSTOPERATIVE DAY 15 AND THEREAFTER AT 500MG B.I.D.
  2. PREDNISONE [Suspect]
     Active Substance: PREDNISONE
     Indication: Renal transplant
     Dosage: 0.5 MG/KG DAILY UNTIL DAY 15, WHICH WAS THEN PROGRESSIVELY TAPERED TO ACHIEVE 5 MG/DAY BY MONTH 3
  3. PROGRAF [Suspect]
     Active Substance: TACROLIMUS
     Indication: Renal transplant
     Dosage: 0.1 MG /KG PRE-TRANSPLANT?ALSO RECEIVED POST TRANSPLANT
  4. HUMAN IMMUNOGLOBULIN G [Concomitant]
     Active Substance: HUMAN IMMUNOGLOBULIN G
  5. METHYLPREDNISOLONE [Concomitant]
     Active Substance: METHYLPREDNISOLONE
     Indication: Renal transplant
     Dosage: 10MG/KG ON DAY 0, 2 MG/KG ON DAY 1, 1 MG/KG ON DAY 2
  6. RITUXIMAB [Concomitant]
     Active Substance: RITUXIMAB
     Indication: Renal transplant
     Dosage: ON DAYS 15 AND 30 PRETRANSPLANT
  7. SULFAMETHOXAZOLE\TRIMETHOPRIM [Concomitant]
     Active Substance: SULFAMETHOXAZOLE\TRIMETHOPRIM
     Indication: Prophylaxis
     Dosage: 400 MG/80 MG EVERY OTHER DAY
  8. Thymoglobulin Genzyme [Concomitant]
     Indication: Renal transplant
     Dosage: 1MG/KG

REACTIONS (3)
  - BK virus infection [Recovered/Resolved]
  - Pyelonephritis acute [Recovered/Resolved]
  - Renal tubular atrophy [Unknown]
